FAERS Safety Report 12965218 (Version 2)
Quarter: 2017Q1

REPORT INFORMATION
  Report Type: Spontaneous
  Country: JP (occurrence: JP)
  Receive Date: 20161122
  Receipt Date: 20170216
  Transmission Date: 20170428
  Serious: Yes (Death, Other)
  Sender: FDA-Public Use
  Company Number: JP-MALLINCKRODT-T201605989

PATIENT
  Age: 44 Year
  Sex: Female

DRUGS (16)
  1. METHADONE [Suspect]
     Active Substance: METHADONE HYDROCHLORIDE
     Indication: CANCER PAIN
     Dosage: 10 MG (30 MG DAILY DOSE)
     Route: 048
     Dates: start: 20150801, end: 20150807
  2. METHADONE [Suspect]
     Active Substance: METHADONE HYDROCHLORIDE
     Dosage: DAILY DOSE 80 MG
     Route: 048
     Dates: start: 20150822, end: 20151030
  3. DECADRON [Concomitant]
     Active Substance: DEXAMETHASONE
     Dosage: 4 MG
     Route: 048
     Dates: end: 20151225
  4. EPADEL [Concomitant]
     Active Substance: ICOSAPENT
     Dosage: 2 DF
     Route: 048
     Dates: start: 20151113, end: 20151225
  5. METHADONE [Suspect]
     Active Substance: METHADONE HYDROCHLORIDE
     Dosage: 30 MG (90 MG DAILY DOSE)
     Route: 048
     Dates: start: 20151031, end: 20151225
  6. LYRICA [Concomitant]
     Active Substance: PREGABALIN
     Indication: ANALGESIC THERAPY
     Dosage: 150 MG
     Route: 048
     Dates: end: 20151225
  7. BROTIZOLAM [Concomitant]
     Active Substance: BROTIZOLAM
     Dosage: 0.25 MG
     Route: 048
     Dates: start: 20150821, end: 20150821
  8. METHADONE [Suspect]
     Active Substance: METHADONE HYDROCHLORIDE
     Dosage: 20 MG (60 MG DAILY DOSE)
     Route: 048
     Dates: start: 20150815, end: 20150821
  9. TRYPTANOL [Concomitant]
     Active Substance: AMITRIPTYLINE
     Indication: ANALGESIC THERAPY
     Dosage: 20 MG
     Route: 048
     Dates: start: 20150904, end: 20150917
  10. METHADONE [Suspect]
     Active Substance: METHADONE HYDROCHLORIDE
     Dosage: 15 MG (45 MG DAILY DOSE)
     Route: 048
     Dates: start: 20150808, end: 20150814
  11. OXINORM [Concomitant]
     Active Substance: OXYCODONE HYDROCHLORIDE
     Indication: ANALGESIC THERAPY
     Dosage: 20 MG, PRN
     Route: 048
     Dates: start: 20150731
  12. NEXIUM [Concomitant]
     Active Substance: ESOMEPRAZOLE MAGNESIUM
     Dosage: 20 MG
     Route: 048
     Dates: end: 20151225
  13. LOXOPROFEN [Concomitant]
     Active Substance: LOXOPROFEN
     Dosage: 60 MG
     Route: 048
     Dates: end: 20151225
  14. MAGMITT [Concomitant]
     Active Substance: MAGNESIUM OXIDE
     Dosage: 660 MG
     Route: 048
     Dates: end: 20151225
  15. SENNOSIDE [Concomitant]
     Active Substance: SENNOSIDES
     Indication: PROPHYLAXIS
     Dosage: 24 MG
     Route: 048
     Dates: end: 20151225
  16. CELECOX [Concomitant]
     Active Substance: CELECOXIB
     Indication: ANALGESIC THERAPY
     Dosage: 400 MG
     Route: 048
     Dates: start: 20151127, end: 20151203

REACTIONS (3)
  - Ovarian cancer [Fatal]
  - Electrocardiogram QT prolonged [Recovering/Resolving]
  - Oral candidiasis [Recovering/Resolving]

NARRATIVE: CASE EVENT DATE: 20150918
